FAERS Safety Report 17436986 (Version 2)
Quarter: 2020Q1

REPORT INFORMATION
  Report Type: Report from Study
  Country: TR (occurrence: TR)
  Receive Date: 20200219
  Receipt Date: 20200327
  Transmission Date: 20200409
  Serious: Yes (Hospitalization)
  Sender: FDA-Public Use
  Company Number: TR-REGENERON PHARMACEUTICALS, INC.-2020-19158

PATIENT

DRUGS (21)
  1. KABIVEN [Concomitant]
     Active Substance: AMINO ACIDS\ANHYDROUS DEXTROSE\CALCIUM CHLORIDE\MAGNESIUM SULFATE HEPTAHYDRATE\POTASSIUM CHLORIDE\SODIUM ACETATE\SODIUM GLYCEROPHOSPHATE ANHYDROUS\SOYBEAN OIL
     Indication: DECREASED APPETITE
     Dosage: 1440 ML, QD
     Route: 042
     Dates: start: 20200129, end: 20200203
  2. ZESTAT                             /01293201/ [Concomitant]
     Indication: PROPHYLAXIS
     Dosage: 15 MG, QD
     Route: 048
     Dates: start: 20191125
  3. OXOPANE [Concomitant]
     Indication: DISEASE PROGRESSION
     Dosage: 10 MG, QD
     Route: 048
     Dates: start: 20191210, end: 20200129
  4. BALABAN [Concomitant]
     Indication: DECUBITUS ULCER
     Dosage: 15 G, QD
     Route: 061
     Dates: start: 20200129, end: 20200130
  5. CARBOPLATIN. [Suspect]
     Active Substance: CARBOPLATIN
     Indication: NON-SMALL CELL LUNG CANCER STAGE IV
     Dosage: AUC 5 MG/ML/MINUTE, Q3W
     Route: 042
     Dates: start: 20190509, end: 20190710
  6. FENIRAMIN [Concomitant]
     Indication: PROPHYLAXIS
     Dosage: 45.5 MG, QD
     Route: 048
     Dates: start: 20200131, end: 20200203
  7. HAMETAN [Concomitant]
     Indication: DECUBITUS ULCER
     Dosage: 30 G, QD
     Route: 061
     Dates: start: 20200129, end: 20200130
  8. CONTRAMAL [Concomitant]
     Active Substance: TRAMADOL HYDROCHLORIDE
     Indication: DISEASE PROGRESSION
     Dosage: 100 MG, QD
     Route: 048
     Dates: start: 20191210, end: 20200129
  9. OKSAPAR [Concomitant]
     Indication: PROPHYLAXIS
     Dosage: 0.4 ML, QD
     Route: 058
     Dates: start: 20200202, end: 20200203
  10. TILCOTIL [Concomitant]
     Active Substance: TENOXICAM
     Indication: DISEASE PROGRESSION
     Dosage: 20 MG, BID
     Route: 048
     Dates: start: 20191210, end: 20200129
  11. SODIUM BICARBONATE BRAUN 8,4% [Concomitant]
     Indication: FATIGUE
     Dosage: 90 ML, QD
     Route: 042
     Dates: start: 20200131, end: 20200201
  12. ONDANSETRON [Concomitant]
     Active Substance: ONDANSETRON
     Indication: DISEASE PROGRESSION
     Dosage: 4 MG, QD
     Route: 042
     Dates: start: 20200129, end: 20200203
  13. PEMETREXED. [Suspect]
     Active Substance: PEMETREXED
     Indication: NON-SMALL CELL LUNG CANCER STAGE IV
     Dosage: 500 MG/M2, Q3W
     Route: 042
     Dates: start: 20190509, end: 20191024
  14. ARCON TISANE [Concomitant]
     Indication: DISEASE PROGRESSION
     Dosage: 20 MG, QD
     Route: 042
     Dates: start: 20200129, end: 20200203
  15. CEMIPLIMAB [Suspect]
     Active Substance: CEMIPLIMAB
     Indication: NON-SMALL CELL LUNG CANCER STAGE IV
     Dosage: 350 MG, Q3W
     Route: 042
     Dates: start: 20200108, end: 20200108
  16. TRADOLEX [Concomitant]
     Indication: DISEASE PROGRESSION
     Dosage: 100 MG, BID
     Route: 042
     Dates: start: 20200129, end: 20200203
  17. MIKOSTATIN [Concomitant]
     Active Substance: NYSTATIN
     Indication: DENTAL DISORDER PROPHYLAXIS
     Dosage: 100000 IU, QD
     Route: 048
     Dates: start: 20200130, end: 20200203
  18. FARDOBEN [Concomitant]
     Indication: PROPHYLAXIS
     Dosage: 200 ML, QD
     Route: 050
     Dates: start: 20200131, end: 20200203
  19. ONZYD [Concomitant]
     Indication: DISEASE PROGRESSION
     Dosage: 4 MG, QD
     Route: 048
     Dates: start: 20191210, end: 20200129
  20. PROGRAS [Concomitant]
     Indication: PROPHYLAXIS AGAINST GASTROINTESTINAL ULCER
     Dosage: 40 MG, QD
     Route: 042
     Dates: start: 20200129, end: 20200203
  21. JETOKAIN [Concomitant]
     Active Substance: EPINEPHRINE\LIDOCAINE HYDROCHLORIDE
     Indication: DENTAL DISORDER PROPHYLAXIS
     Dosage: 2 ML, QD
     Route: 048
     Dates: start: 20200131, end: 20200201

REACTIONS (1)
  - Pneumonia [Not Recovered/Not Resolved]

NARRATIVE: CASE EVENT DATE: 20200212
